FAERS Safety Report 6179113-2 (Version None)
Quarter: 2009Q2

REPORT INFORMATION
  Report Type: 
  Country: None (occurrence: None)
  Receive Date: 20090505
  Receipt Date: 20090427
  Transmission Date: 20091009
  Serious: Yes (Death, Hospitalization)
  Sender: FDA-Public Use
  Company Number: US-BIOGENIDEC-2009BI012734

PATIENT
  Age: 74 Year
  Sex: Male
  Weight: 57 kg

DRUGS (1)
  1. AVONEX [Suspect]
     Indication: MULTIPLE SCLEROSIS
     Route: 030
     Dates: start: 19960101, end: 20050901

REACTIONS (9)
  - ABASIA [None]
  - AMNESIA [None]
  - CEREBROVASCULAR ACCIDENT [None]
  - CYSTITIS [None]
  - DEATH [None]
  - DYSPNOEA [None]
  - HALLUCINATION [None]
  - LUNG INFECTION [None]
  - SEPSIS [None]
